FAERS Safety Report 6757652-0 (Version None)
Quarter: 2010Q2

REPORT INFORMATION
  Report Type: 
  Country: None (occurrence: None)
  Receive Date: 20100602
  Receipt Date: 20100525
  Transmission Date: 20101027
  Serious: Yes (Other)
  Sender: FDA-Public Use
  Company Number: 2010SP022194

PATIENT
  Age: 49 Year
  Sex: Female

DRUGS (16)
  1. SAPHRIS [Suspect]
     Indication: BIPOLAR DISORDER
     Dosage: 5 MG;BID; 10 MG;BID
     Dates: start: 20100215, end: 20100301
  2. SAPHRIS [Suspect]
     Indication: PSYCHOTIC DISORDER
     Dosage: 5 MG;BID; 10 MG;BID
     Dates: start: 20100215, end: 20100301
  3. SAPHRIS [Suspect]
     Indication: SCHIZOAFFECTIVE DISORDER
     Dosage: 5 MG;BID; 10 MG;BID
     Dates: start: 20100215, end: 20100301
  4. SAPHRIS [Suspect]
     Indication: BIPOLAR DISORDER
     Dosage: 5 MG;BID; 10 MG;BID
     Dates: start: 20100301, end: 20100301
  5. SAPHRIS [Suspect]
     Indication: PSYCHOTIC DISORDER
     Dosage: 5 MG;BID; 10 MG;BID
     Dates: start: 20100301, end: 20100301
  6. SAPHRIS [Suspect]
     Indication: SCHIZOAFFECTIVE DISORDER
     Dosage: 5 MG;BID; 10 MG;BID
     Dates: start: 20100301, end: 20100301
  7. SAPHRIS [Suspect]
     Indication: BIPOLAR DISORDER
     Dosage: 5 MG;BID; 10 MG;BID
     Dates: start: 20100301, end: 20100301
  8. SAPHRIS [Suspect]
     Indication: PSYCHOTIC DISORDER
     Dosage: 5 MG;BID; 10 MG;BID
     Dates: start: 20100301, end: 20100301
  9. SAPHRIS [Suspect]
     Indication: SCHIZOAFFECTIVE DISORDER
     Dosage: 5 MG;BID; 10 MG;BID
     Dates: start: 20100301, end: 20100301
  10. XANAX [Concomitant]
  11. PROPRANOLOL [Concomitant]
  12. AMBIEN [Concomitant]
  13. CYMBALTA [Concomitant]
  14. ESKALITH [Concomitant]
  15. LITHOBID [Concomitant]
  16. GEODON [Concomitant]

REACTIONS (7)
  - AGITATION [None]
  - DROOLING [None]
  - FACE OEDEMA [None]
  - GENERALISED OEDEMA [None]
  - HOT FLUSH [None]
  - HUNGER [None]
  - SWELLING FACE [None]
